FAERS Safety Report 5134734-0 (Version None)
Quarter: 2006Q4

REPORT INFORMATION
  Report Type: 
  Country: None (occurrence: None)
  Receive Date: 20061025
  Receipt Date: 20061012
  Transmission Date: 20070319
  Serious: Yes (Other)
  Sender: FDA-Public Use
  Company Number: 2006GB01844

PATIENT
  Sex: Female

DRUGS (2)
  1. ZOLADEX [Suspect]
     Indication: MENOPAUSAL SYMPTOMS
     Route: 058
     Dates: start: 20060926
  2. HRT [Concomitant]
     Indication: MENOPAUSAL SYMPTOMS

REACTIONS (3)
  - DYSPNOEA [None]
  - PALPITATIONS [None]
  - PANIC ATTACK [None]
